FAERS Safety Report 10999776 (Version 1)
Quarter: 2015Q2

REPORT INFORMATION
  Report Type: Spontaneous
  Country: US (occurrence: US)
  Receive Date: 20150408
  Receipt Date: 20150408
  Transmission Date: 20150821
  Serious: Yes (Other)
  Sender: FDA-Public Use
  Company Number: US-MALLINCKRODT-T201501695

PATIENT
  Age: 16 Year
  Sex: Female

DRUGS (1)
  1. GABLOFEN [Suspect]
     Active Substance: BACLOFEN
     Indication: MUSCLE SPASTICITY
     Dosage: 169.8 MCG/DAY
     Route: 037

REACTIONS (1)
  - Spinal cord infection [Recovered/Resolved]

NARRATIVE: CASE EVENT DATE: 20150125
